FAERS Safety Report 19750219 (Version 1)
Quarter: 2021Q3

REPORT INFORMATION
  Report Type: Spontaneous
  Country: CA (occurrence: CA)
  Receive Date: 20210826
  Receipt Date: 20210826
  Transmission Date: 20211014
  Serious: Yes (Other)
  Sender: FDA-Public Use
  Company Number: CA-TEVA-2021-CA-1944281

PATIENT
  Age: 58 Year
  Sex: Male

DRUGS (18)
  1. ENZALUTAMIDE [Suspect]
     Active Substance: ENZALUTAMIDE
     Indication: PROSTATE CANCER
     Route: 065
  2. LEUPROLIDE ACETATE. [Suspect]
     Active Substance: LEUPROLIDE ACETATE
     Route: 065
  3. RALTEGRAVIR. [Concomitant]
     Active Substance: RALTEGRAVIR
     Indication: HIV INFECTION
     Route: 065
  4. DOLUTEGRAVIR SODIUM [Suspect]
     Active Substance: DOLUTEGRAVIR SODIUM
     Indication: HIV INFECTION
     Dosage: 100 MILLIGRAM DAILY;
     Route: 065
  5. RITONAVIR. [Suspect]
     Active Substance: RITONAVIR
     Dosage: 400 MILLIGRAM DAILY;
     Route: 065
  6. BICALUTAMIDE. [Interacting]
     Active Substance: BICALUTAMIDE
     Route: 048
  7. DARUNAVIR [Suspect]
     Active Substance: DARUNAVIR
     Indication: HIV INFECTION
     Dosage: 1200 MILLIGRAM DAILY;
     Route: 065
  8. EMTRICITABINE+TENOFOVIR ALAFENAMIDE FUMARATE [Concomitant]
     Indication: HIV INFECTION
     Route: 065
  9. BICALUTAMIDE. [Suspect]
     Active Substance: BICALUTAMIDE
     Indication: PROSTATE CANCER
     Route: 048
  10. BICALUTAMIDE. [Interacting]
     Active Substance: BICALUTAMIDE
     Indication: METASTASES TO BONE
     Route: 048
  11. BICALUTAMIDE. [Interacting]
     Active Substance: BICALUTAMIDE
     Route: 048
  12. RITONAVIR. [Suspect]
     Active Substance: RITONAVIR
     Indication: HIV INFECTION
     Route: 065
  13. ENZALUTAMIDE [Suspect]
     Active Substance: ENZALUTAMIDE
     Route: 065
  14. ETRAVIRINE [Suspect]
     Active Substance: ETRAVIRINE
     Route: 065
  15. LEUPROLIDE ACETATE. [Suspect]
     Active Substance: LEUPROLIDE ACETATE
     Indication: PROSTATE CANCER
     Route: 065
  16. LEUPROLIDE ACETATE. [Suspect]
     Active Substance: LEUPROLIDE ACETATE
     Indication: METASTASES TO BONE
     Route: 065
  17. ETRAVIRINE [Suspect]
     Active Substance: ETRAVIRINE
     Indication: HIV INFECTION
     Dosage: 400 MILLIGRAM DAILY;
     Route: 065
  18. LEUPROLIDE ACETATE. [Suspect]
     Active Substance: LEUPROLIDE ACETATE
     Route: 065

REACTIONS (4)
  - Drug ineffective [Unknown]
  - Drug interaction [Unknown]
  - Drug level decreased [Unknown]
  - Prostate cancer [Unknown]
